FAERS Safety Report 4869803-3 (Version None)
Quarter: 2005Q4

REPORT INFORMATION
  Report Type: 
  Country: None (occurrence: None)
  Receive Date: 20051223
  Receipt Date: 20051216
  Transmission Date: 20060501
  Serious: Yes (Other)
  Sender: FDA-Public Use
  Company Number: HQWYE073016DEC05

PATIENT
  Age: 84 Year
  Sex: Female

DRUGS (5)
  1. CORDARONE [Suspect]
     Indication: ATRIAL FIBRILLATION
     Dosage: INTRAVENOUS
     Route: 042
  2. CORDARONE [Suspect]
     Indication: ATRIAL FIBRILLATION
     Dosage: 800 MG 1X PER 1 DAY
  3. CORDARONE [Suspect]
     Dosage: 200 MG 1X PER 1 DAY
  4. VERAPAMIL [Concomitant]
  5. WARFARIN (WARFARIN) [Concomitant]

REACTIONS (9)
  - BALANCE DISORDER [None]
  - COORDINATION ABNORMAL [None]
  - CRANIAL NERVE DISORDER [None]
  - FALL [None]
  - MEMORY IMPAIRMENT [None]
  - NEUROMYOPATHY [None]
  - NEUROTOXICITY [None]
  - SPEECH DISORDER [None]
  - SUICIDAL IDEATION [None]
